FAERS Safety Report 8860385 (Version 1)
Quarter: 2012Q4

REPORT INFORMATION
  Report Type: Report from Study
  Country: CA (occurrence: CA)
  Receive Date: 20121025
  Receipt Date: 20121025
  Transmission Date: 20130627
  Serious: Yes (Hospitalization, Other)
  Sender: FDA-Public Use
  Company Number: CA-JNJFOC-20121008217

PATIENT
  Age: 49 Year
  Sex: Female
  Weight: 70 kg

DRUGS (5)
  1. REMICADE [Suspect]
     Indication: CROHN^S DISEASE
     Route: 042
     Dates: start: 20100301, end: 20120618
  2. CALCIUM [Concomitant]
     Route: 065
  3. LOSEC [Concomitant]
     Route: 065
  4. TRAZODONE [Concomitant]
     Route: 065
  5. ROCALTROL [Concomitant]
     Route: 065

REACTIONS (4)
  - Pleurisy [Recovering/Resolving]
  - Oxygen saturation decreased [Recovering/Resolving]
  - Pulmonary oedema [Recovering/Resolving]
  - Lymphadenopathy [Recovering/Resolving]
